FAERS Safety Report 9145708 (Version 1)
Quarter: 2013Q1

REPORT INFORMATION
  Report Type: Spontaneous
  Country: IT (occurrence: IT)
  Receive Date: 20130307
  Receipt Date: 20130307
  Transmission Date: 20140127
  Serious: Yes (Other)
  Sender: FDA-Public Use
  Company Number: IT-BRISTOL-MYERS SQUIBB COMPANY-17443672

PATIENT
  Age: 52 Year
  Sex: Female

DRUGS (3)
  1. GLUCOPHAGE TABS 500 MG [Suspect]
     Dosage: 30 COATED TABLET.
     Route: 048
     Dates: start: 20121114, end: 20121130
  2. TOTALIP [Suspect]
     Dosage: 20 MG TABS
     Route: 048
     Dates: start: 20121123, end: 20121130
  3. TENORMIN [Concomitant]
     Dosage: TABS

REACTIONS (4)
  - Dysentery [Recovering/Resolving]
  - Dyspnoea [Recovering/Resolving]
  - Swelling face [Recovering/Resolving]
  - Abdominal pain [Recovering/Resolving]
